FAERS Safety Report 10038571 (Version 1)
Quarter: 2014Q1

REPORT INFORMATION
  Report Type: Spontaneous
  Country: FR (occurrence: FR)
  Receive Date: 20140326
  Receipt Date: 20140326
  Transmission Date: 20141002
  Serious: Yes (Hospitalization)
  Sender: FDA-Public Use
  Company Number: FR-TEVA-470287ISR

PATIENT
  Age: 67 Year
  Sex: Male

DRUGS (10)
  1. DOXORUBICIN TEVA [Suspect]
     Indication: LYMPHOMA
     Dosage: UP TO -MAR-2008
     Route: 042
     Dates: start: 20070729
  2. BLEOMYCINE [Suspect]
     Route: 042
     Dates: start: 20070729, end: 20071128
  3. VELBE [Suspect]
     Route: 042
     Dates: start: 20070729, end: 200803
  4. SOLUMEDROL [Suspect]
     Route: 042
     Dates: start: 20070729, end: 200803
  5. DETICENE [Concomitant]
     Route: 042
     Dates: start: 20070729, end: 200803
  6. TAHOR [Concomitant]
     Dosage: 10 MILLIGRAM DAILY; USUAL TREATMENT
  7. NISISCO [Concomitant]
     Dosage: 80 MILLIGRAM DAILY; USUAL TREATMENT
  8. ZYLORIC [Concomitant]
     Dosage: 100 MILLIGRAM DAILY; USUAL TREATMENT
  9. NOCTAMIDE [Concomitant]
     Dosage: 2 MILLIGRAM DAILY; USUAL TREATMENT
  10. CORTANCYL [Concomitant]
     Dosage: 20 MILLIGRAM DAILY; USUAL TREATMENT

REACTIONS (2)
  - Interstitial lung disease [Recovered/Resolved with Sequelae]
  - Pulmonary fibrosis [Recovered/Resolved with Sequelae]
